FAERS Safety Report 4668774-2 (Version None)
Quarter: 2005Q2

REPORT INFORMATION
  Report Type: 
  Country: None (occurrence: None)
  Receive Date: 20050523
  Receipt Date: 20050114
  Transmission Date: 20051028
  Serious: Yes (Other)
  Sender: FDA-Public Use
  Company Number: PHNU2005DE00564

PATIENT
  Age: 61 Year
  Sex: Male
  Weight: 85 kg

DRUGS (11)
  1. ZOMETA [Suspect]
     Indication: PLASMACYTOMA
     Dosage: 4 MG, QMO
     Route: 042
     Dates: start: 20020920, end: 20050101
  2. DEXAMETHASONE [Concomitant]
     Indication: PLASMACYTOMA
     Dosage: 4 CYCLES
     Route: 042
     Dates: start: 20030301, end: 20030601
  3. DEXAMETHASONE [Concomitant]
     Route: 042
     Dates: start: 20050201
  4. CYCLOPHOSPHAMID W/DOXORUBICIN [Concomitant]
     Indication: HAEMATOPOIETIC STEM CELL MOBILISATION
     Route: 042
     Dates: start: 20030701, end: 20030701
  5. CYCLOPHOSPHAMIDE W/VINCRISTINE/PREDNISONE [Concomitant]
     Indication: PLASMACYTOMA
     Dosage: 2 CYCLES
     Route: 042
     Dates: start: 20041001, end: 20041001
  6. DOXORUBICIN HCL [Concomitant]
     Indication: PLASMACYTOMA
     Dosage: 2 CYCLES
     Route: 042
     Dates: start: 20041001, end: 20041001
  7. CYCLOPHOSPHAMIDE [Concomitant]
     Indication: PLASMACYTOMA
     Route: 042
     Dates: start: 20050201
  8. ETOPOSIDE [Concomitant]
     Indication: PLASMACYTOMA
     Route: 042
     Dates: start: 20050201
  9. PLATINUM COMPOUNDS [Concomitant]
     Indication: PLASMACYTOMA
     Route: 042
     Dates: start: 20050201
  10. THALIDOMIDE [Concomitant]
     Indication: PLASMACYTOMA
     Route: 065
     Dates: start: 20050201
  11. MELPHALAN [Concomitant]
     Indication: PLASMACYTOMA
     Dosage: 4 CYCLES
     Route: 042
     Dates: start: 20030301, end: 20030601

REACTIONS (7)
  - BONE DISORDER [None]
  - IMPAIRED HEALING [None]
  - MALIGNANT NEOPLASM PROGRESSION [None]
  - MULTIPLE MYELOMA [None]
  - OSTEONECROSIS [None]
  - PLASMACYTOMA [None]
  - TOOTH EXTRACTION [None]
